FAERS Safety Report 23549166 (Version 1)
Quarter: 2024Q1

REPORT INFORMATION
  Report Type: Spontaneous
  Country: KR (occurrence: KR)
  Receive Date: 20240221
  Receipt Date: 20240221
  Transmission Date: 20240410
  Serious: Yes (Other)
  Sender: FDA-Public Use
  Company Number: KR-SA-SAC20240217000015

PATIENT
  Age: 47 Year
  Sex: Female

DRUGS (3)
  1. ZALTRAP [Suspect]
     Active Substance: ZIV-AFLIBERCEPT
     Indication: Rectal cancer
     Dosage: 296 MG, QOW
     Route: 065
     Dates: start: 20210928, end: 20220111
  2. IRINOTECAN HYDROCHLORIDE [Suspect]
     Active Substance: IRINOTECAN HYDROCHLORIDE
     Indication: Rectal cancer
     Dosage: 333 MG, QOW
     Dates: start: 20210928, end: 20220111
  3. FLUOROURACIL [Suspect]
     Active Substance: FLUOROURACIL
     Indication: Rectal cancer
     Dosage: 4400 MG, QOW
     Route: 065
     Dates: start: 20210928, end: 20220111

REACTIONS (1)
  - Neuropathy peripheral [Recovering/Resolving]

NARRATIVE: CASE EVENT DATE: 20220111
